FAERS Safety Report 16716001 (Version 21)
Quarter: 2021Q3

REPORT INFORMATION
  Report Type: Spontaneous
  Country: US (occurrence: US)
  Receive Date: 20190819
  Receipt Date: 20210924
  Transmission Date: 20211014
  Serious: No
  Sender: FDA-Public Use
  Company Number: US-PFIZER INC-2019354552

PATIENT
  Age: 51 Year
  Sex: Female
  Weight: 58 kg

DRUGS (8)
  1. LYRICA [Suspect]
     Active Substance: PREGABALIN
     Dosage: 100 MG, (2X/3X TIMES A DAY)
  2. LYRICA [Suspect]
     Active Substance: PREGABALIN
     Indication: PAIN
     Dosage: 200 MG, 4X/DAY (100 MG, 2 CAPSULES, EVERY 6 HOURS)
  3. LYRICA [Suspect]
     Active Substance: PREGABALIN
     Dosage: 200 MG, 3X/DAY
     Route: 048
  4. LYRICA [Suspect]
     Active Substance: PREGABALIN
     Indication: NEURALGIA
     Dosage: 100 MG, 3X/DAY
     Route: 048
  5. LYRICA [Suspect]
     Active Substance: PREGABALIN
     Dosage: 200 MG, 4X/DAY (EVERY 6 HOURS)
  6. LYRICA [Suspect]
     Active Substance: PREGABALIN
     Indication: NERVE INJURY
     Dosage: 100 MG, 1X/DAY
  7. LYRICA [Suspect]
     Active Substance: PREGABALIN
     Dosage: 100 MG
  8. LYRICA [Suspect]
     Active Substance: PREGABALIN
     Indication: GINGIVAL PAIN
     Dosage: 100 MG, 4X/DAY (EVERY 6 HOURS)
     Route: 048

REACTIONS (27)
  - Malaise [Unknown]
  - Gingival disorder [Unknown]
  - Intentional product misuse [Unknown]
  - Prescribed overdose [Unknown]
  - Anxiety [Unknown]
  - Frustration tolerance decreased [Unknown]
  - Movement disorder [Unknown]
  - Nasopharyngitis [Unknown]
  - Product colour issue [Unknown]
  - Ear pain [Unknown]
  - Procedural pain [Unknown]
  - Somnolence [Unknown]
  - Crying [Unknown]
  - Asthenia [Unknown]
  - Decreased immune responsiveness [Unknown]
  - Fatigue [Unknown]
  - Product dispensing error [Unknown]
  - Influenza [Recovering/Resolving]
  - Panic attack [Unknown]
  - Feeling jittery [Unknown]
  - Feeling abnormal [Unknown]
  - Anger [Unknown]
  - Weight decreased [Unknown]
  - Drug ineffective [Unknown]
  - Intentional product use issue [Unknown]
  - Thinking abnormal [Unknown]
  - Auditory disorder [Unknown]

NARRATIVE: CASE EVENT DATE: 20191005
